FAERS Safety Report 8567002-5 (Version None)
Quarter: 2012Q3

REPORT INFORMATION
  Report Type: 
  Country: None (occurrence: None)
  Receive Date: 20120803
  Receipt Date: 20110928
  Transmission Date: 20120928
  Serious: No
  Sender: FDA-Public Use
  Company Number: US-ABBOTT-11P-163-0859370-00

PATIENT
  Age: 66 Year
  Sex: Male
  Weight: 94.432 kg

DRUGS (11)
  1. NIASPAN [Suspect]
     Indication: LOW DENSITY LIPOPROTEIN INCREASED
     Dates: start: 20100101, end: 20100101
  2. NIASPAN [Suspect]
     Indication: HIGH DENSITY LIPOPROTEIN DECREASED
     Dates: start: 20110301
  3. CRESTOR [Concomitant]
     Indication: BLOOD TRIGLYCERIDES INCREASED
  4. COREG [Suspect]
     Indication: HYPERTENSION
  5. LOVAZA [Concomitant]
     Indication: BLOOD CHOLESTEROL INCREASED
  6. COQ10 [Concomitant]
     Indication: MEDICAL DIET
  7. COSEQUIN DS [Concomitant]
     Indication: ARTHRITIS
  8. TYLENOL (CAPLET) [Concomitant]
     Indication: ARTHRITIS
  9. PLAVIX [Concomitant]
     Indication: PRODUCT USED FOR UNKNOWN INDICATION
  10. VITAMIN D [Concomitant]
     Indication: PRODUCT USED FOR UNKNOWN INDICATION
  11. AMLODIPINE [Suspect]
     Indication: HYPERTENSION

REACTIONS (4)
  - ABDOMINAL DISTENSION [None]
  - FLUSHING [None]
  - HYPOTENSION [None]
  - PRURITUS [None]
